FAERS Safety Report 5156336-2 (Version None)
Quarter: 2006Q4

REPORT INFORMATION
  Report Type: 
  Country: None (occurrence: None)
  Receive Date: 20061122
  Receipt Date: 20061114
  Transmission Date: 20070319
  Serious: Yes (Hospitalization)
  Sender: FDA-Public Use
  Company Number: ES-GLAXOSMITHKLINE-B0447301A

PATIENT
  Age: 48 Year
  Sex: Female

DRUGS (1)
  1. AUGMENTIN '125' [Suspect]
     Indication: CELLULITIS
     Route: 048
     Dates: start: 20060704, end: 20060711

REACTIONS (1)
  - HEPATITIS CHOLESTATIC [None]
